FAERS Safety Report 9721943 (Version 2)
Quarter: 2013Q4

REPORT INFORMATION
  Report Type: Report from Study
  Country: BE (occurrence: BE)
  Receive Date: 20131202
  Receipt Date: 20131202
  Transmission Date: 20140711
  Serious: Yes (Death, Hospitalization)
  Sender: FDA-Public Use
  Company Number: BE-ROCHE-1076091

PATIENT
  Age: 77 Year
  Sex: Male
  Weight: 65 kg

DRUGS (3)
  1. BEVACIZUMAB [Suspect]
     Indication: COLORECTAL CANCER METASTATIC
     Route: 042
     Dates: start: 20111010
  2. OXALIPLATIN [Suspect]
     Indication: COLORECTAL CANCER METASTATIC
     Route: 042
     Dates: start: 20111010
  3. 5-FLUOROURACIL [Suspect]
     Indication: COLORECTAL CANCER METASTATIC
     Route: 042
     Dates: start: 20111010

REACTIONS (3)
  - Cachexia [Fatal]
  - Diarrhoea [Recovered/Resolved]
  - Anaemia [Not Recovered/Not Resolved]
